FAERS Safety Report 8791937 (Version 1)
Quarter: 2012Q4

REPORT INFORMATION
  Report Type: 
  Country: LB (occurrence: LB)
  Receive Date: 20120918
  Receipt Date: 20120918
  Transmission Date: 20130627
  Serious: Yes (Life-Threatening, Hospitalization)
  Sender: FDA-Public Use
  Company Number: LB-SANOFI-AVENTIS-2012SA067527

PATIENT
  Age: 62 Year
  Sex: Male

DRUGS (1)
  1. LOVENOX [Suspect]
     Indication: PULMONARY EMBOLISM
     Route: 058
     Dates: start: 20120621, end: 20120826

REACTIONS (2)
  - Convulsion [Recovering/Resolving]
  - Spinal epidural haemorrhage [Recovering/Resolving]
